FAERS Safety Report 14134960 (Version 6)
Quarter: 2018Q4

REPORT INFORMATION
  Report Type: Report from Study
  Country: ES (occurrence: ES)
  Receive Date: 20171027
  Receipt Date: 20181009
  Transmission Date: 20190204
  Serious: Yes (Life-Threatening, Hospitalization)
  Sender: FDA-Public Use
  Company Number: ES-ROCHE-2014581

PATIENT
  Age: 79 Year
  Sex: Male
  Weight: 88 kg

DRUGS (14)
  1. OMEPRAZOL [Concomitant]
     Active Substance: OMEPRAZOLE
     Route: 048
     Dates: end: 20171108
  2. AMOXICILLIN. [Concomitant]
     Active Substance: AMOXICILLIN
     Route: 048
     Dates: start: 201712, end: 20171220
  3. ATEZOLIZUMAB. [Suspect]
     Active Substance: ATEZOLIZUMAB
     Indication: HORMONE-REFRACTORY PROSTATE CANCER
     Dosage: DATE OF MOST RECENT DOSE PRIOR TO SERIOUS ADVERSE EVENT WAS ON 23/OCT/2017 AT 18:00.
     Route: 042
     Dates: start: 20171023
  4. SIMVASTATINE [Concomitant]
     Active Substance: SIMVASTATIN
     Route: 048
     Dates: start: 20171023, end: 20171108
  5. ACETYLSALICYLIC ACID [Concomitant]
     Active Substance: ASPIRIN
     Route: 048
     Dates: start: 20171023
  6. PREGABALIN. [Concomitant]
     Active Substance: PREGABALIN
     Route: 048
     Dates: end: 20171220
  7. HYDROCHLOROTHIAZIDE/TELMISARTAN [Concomitant]
     Active Substance: HYDROCHLOROTHIAZIDE\TELMISARTAN
     Dosage: TELMISARTAN 40 / HYDROCHLOROTHIAZIDE 12.5
     Route: 048
     Dates: start: 20171023, end: 20171108
  8. RANITIDINE. [Concomitant]
     Active Substance: RANITIDINE
     Route: 048
     Dates: start: 20170111
  9. LEUPROLIDE ACETATE. [Concomitant]
     Active Substance: LEUPROLIDE ACETATE
     Route: 030
  10. ACETYLCYSTEINE. [Concomitant]
     Active Substance: ACETYLCYSTEINE
     Route: 048
     Dates: start: 201712, end: 20171220
  11. BROMAZEPAM [Concomitant]
     Active Substance: BROMAZEPAM
     Route: 048
     Dates: start: 20171023, end: 20171108
  12. ENZALUTAMIDE [Suspect]
     Active Substance: ENZALUTAMIDE
     Indication: HORMONE-REFRACTORY PROSTATE CANCER
     Dosage: DATE OF MOST RECENT DOSE PRIOR TO SAE ON 23/OCT/2017 AT 15:00.
     Route: 048
     Dates: start: 20171023
  13. SPIRONOLACTONE. [Concomitant]
     Active Substance: SPIRONOLACTONE
     Route: 048
     Dates: end: 20171108
  14. TAPENTADOL [Concomitant]
     Active Substance: TAPENTADOL
     Route: 048
     Dates: end: 20171203

REACTIONS (1)
  - Myocarditis [Recovered/Resolved]

NARRATIVE: CASE EVENT DATE: 20171023
